FAERS Safety Report 22661029 (Version 1)
Quarter: 2023Q2

REPORT INFORMATION
  Report Type: Other
  Country: CA (occurrence: CA)
  Receive Date: 20230630
  Receipt Date: 20230630
  Transmission Date: 20230722
  Serious: Yes (Other)
  Sender: FDA-Public Use
  Company Number: CA-PFIZER INC-202300232771

PATIENT
  Age: 71 Year
  Sex: Male

DRUGS (3)
  1. GELATIN [Suspect]
     Active Substance: GELATIN
     Indication: Hepatocellular carcinoma
     Route: 013
  2. DOXORUBICIN HYDROCHLORIDE [Suspect]
     Active Substance: DOXORUBICIN HYDROCHLORIDE
     Indication: Hepatocellular carcinoma
     Dosage: 100 MG
     Route: 013
  3. ETHIODIZED OIL [Suspect]
     Active Substance: ETHIODIZED OIL
     Indication: Hepatocellular carcinoma
     Dosage: 8 ML
     Route: 013

REACTIONS (7)
  - Off label use [Not Recovered/Not Resolved]
  - Off label use [Not Recovered/Not Resolved]
  - Device use issue [Not Recovered/Not Resolved]
  - Abdominal injury [Not Recovered/Not Resolved]
  - Dysaesthesia [Not Recovered/Not Resolved]
  - Skin injury [Not Recovered/Not Resolved]
  - Ulcer [Not Recovered/Not Resolved]
